FAERS Safety Report 8560509-6 (Version None)
Quarter: 2012Q3

REPORT INFORMATION
  Report Type: 
  Country: None (occurrence: None)
  Receive Date: 20120802
  Receipt Date: 20120726
  Transmission Date: 20120928
  Serious: Yes (Hospitalization, Other)
  Sender: FDA-Public Use
  Company Number: FR-PFIZER INC-2012180819

PATIENT
  Age: 30 Year
  Sex: Male

DRUGS (4)
  1. EFFEXOR XR [Suspect]
     Dosage: 75 MG, 1X/DAY
     Route: 048
     Dates: start: 20120101
  2. TERCIAN [Suspect]
     Dosage: 25 MG, 4X/DAY
     Route: 048
     Dates: start: 20080101, end: 20120617
  3. LORAZEPAM [Concomitant]
     Dosage: 3 MG, 1X/DAY
     Dates: start: 20070101
  4. CLOZAPINE [Suspect]
     Dosage: 300 MG, 1X/DAY
     Route: 048
     Dates: start: 20100414, end: 20120617

REACTIONS (5)
  - OROPHARYNGEAL PAIN [None]
  - HAEMOGLOBIN DECREASED [None]
  - PLATELET COUNT DECREASED [None]
  - RED BLOOD CELL COUNT DECREASED [None]
  - AGRANULOCYTOSIS [None]
